FAERS Safety Report 18191680 (Version 1)
Quarter: 2020Q3

REPORT INFORMATION
  Report Type: Spontaneous
  Country: US (occurrence: US)
  Receive Date: 20200824
  Receipt Date: 20200824
  Transmission Date: 20201103
  Serious: No
  Sender: FDA-Public Use
  Company Number: US-AMGEN-USASP2020136410

PATIENT
  Sex: Male

DRUGS (3)
  1. MELOXICAM. [Concomitant]
     Active Substance: MELOXICAM
     Dosage: UNK
  2. ENBREL [Suspect]
     Active Substance: ETANERCEPT
     Indication: PSORIATIC ARTHROPATHY
     Dosage: 50 MILLIGRAM, QWK
     Route: 058
  3. SULFASALAZINE. [Concomitant]
     Active Substance: SULFASALAZINE
     Dosage: UNK

REACTIONS (1)
  - Nausea [Recovered/Resolved]
